FAERS Safety Report 6288970-0 (Version None)
Quarter: 2009Q3

REPORT INFORMATION
  Report Type: 
  Country: None (occurrence: None)
  Receive Date: 20090729
  Receipt Date: 20090723
  Transmission Date: 20100115
  Serious: Yes (Life-Threatening, Hospitalization)
  Sender: FDA-Public Use
  Company Number: FR-ABBOTT-09P-056-0584331-00

PATIENT
  Sex: Female

DRUGS (12)
  1. KALETRA [Suspect]
     Indication: HIV INFECTION
  2. BACTRIM [Suspect]
     Indication: DRUG USE FOR UNKNOWN INDICATION
     Dates: start: 20090618, end: 20090626
  3. RIMIFON [Suspect]
     Indication: TUBERCULOSIS
     Dates: start: 20090610
  4. KIVEXA [Suspect]
     Indication: HIV INFECTION
  5. NICARDIPINE HCL [Concomitant]
     Indication: DRUG USE FOR UNKNOWN INDICATION
  6. BUMEX [Concomitant]
     Indication: DRUG USE FOR UNKNOWN INDICATION
  7. MOPRAL [Concomitant]
     Indication: DRUG USE FOR UNKNOWN INDICATION
  8. ISENTRESS [Concomitant]
     Indication: DRUG USE FOR UNKNOWN INDICATION
  9. HYPONOVEL [Concomitant]
     Indication: DRUG USE FOR UNKNOWN INDICATION
  10. SUFENTA PRESERVATIVE FREE [Concomitant]
     Indication: DRUG USE FOR UNKNOWN INDICATION
  11. ISILOX [Concomitant]
     Indication: DRUG USE FOR UNKNOWN INDICATION
  12. ANSATIPINE [Concomitant]
     Indication: DRUG USE FOR UNKNOWN INDICATION

REACTIONS (6)
  - HAEMOLYTIC URAEMIC SYNDROME [None]
  - INFECTION [None]
  - LIPASE INCREASED [None]
  - PAIN [None]
  - PANCREATITIS [None]
  - PANCREATITIS ACUTE [None]
